FAERS Safety Report 9942468 (Version 1)
Quarter: 2014Q1

REPORT INFORMATION
  Report Type: Report from Study
  Country: US (occurrence: US)
  Receive Date: 20140303
  Receipt Date: 20140303
  Transmission Date: 20141002
  Serious: No
  Sender: FDA-Public Use
  Company Number: US-ABBVIE-13P-163-1044986-00

PATIENT
  Sex: Male
  Weight: 113.5 kg

DRUGS (4)
  1. HUMIRA [Suspect]
     Indication: CROHN^S DISEASE
     Dates: start: 2009, end: 201211
  2. LEVOTHYROXINE [Concomitant]
     Indication: HYPOTHYROIDISM
  3. FLOMAX [Concomitant]
     Indication: PROSTATIC DISORDER
  4. ATENOLOL [Concomitant]
     Indication: PALPITATIONS

REACTIONS (6)
  - Therapeutic response unexpected [Recovered/Resolved]
  - Pain [Recovered/Resolved]
  - Rectal haemorrhage [Recovered/Resolved]
  - Pain [Not Recovered/Not Resolved]
  - Rectal haemorrhage [Not Recovered/Not Resolved]
  - Arthritis [Recovered/Resolved]
